FAERS Safety Report 15189948 (Version 1)
Quarter: 2018Q3

REPORT INFORMATION
  Report Type: Spontaneous
  Country: FR (occurrence: FR)
  Receive Date: 20180724
  Receipt Date: 20180724
  Transmission Date: 20181010
  Serious: Yes (Hospitalization, Other)
  Sender: FDA-Public Use
  Company Number: PHHY2018FR053965

PATIENT
  Age: 74 Year
  Sex: Female

DRUGS (2)
  1. AFINITOR [Suspect]
     Active Substance: EVEROLIMUS
     Indication: NEOPLASM MALIGNANT
     Dosage: 5 MG, UNK
     Route: 048
     Dates: start: 201710, end: 20180413
  2. LOVENOX [Suspect]
     Active Substance: ENOXAPARIN SODIUM
     Indication: THROMBOSIS PROPHYLAXIS
     Route: 058
     Dates: start: 20180404, end: 20180413

REACTIONS (1)
  - Hepatic haemorrhage [Recovering/Resolving]

NARRATIVE: CASE EVENT DATE: 20180411
